FAERS Safety Report 11403987 (Version 3)
Quarter: 2015Q3

REPORT INFORMATION
  Report Type: Spontaneous
  Country: FR (occurrence: FR)
  Receive Date: 20150821
  Receipt Date: 20150917
  Transmission Date: 20151125
  Serious: Yes (Hospitalization)
  Sender: FDA-Public Use
  Company Number: FR-PFIZER INC-2015271294

PATIENT
  Age: 72 Year
  Sex: Male

DRUGS (12)
  1. XATRAL [Concomitant]
     Active Substance: ALFUZOSIN
     Dosage: UNK
  2. LASILIX SPECIAL [Suspect]
     Active Substance: FUROSEMIDE
     Dosage: 250 MG, DAILY
     Route: 048
     Dates: end: 2015
  3. KARDEGIC [Concomitant]
     Active Substance: ASPIRIN LYSINE
     Dosage: UNK
  4. NOVOMIX [Concomitant]
     Active Substance: INSULIN ASPART
     Dosage: UNK
  5. CIFLOX [Suspect]
     Active Substance: CIPROFLOXACIN
     Indication: PROSTATITIS
     Dosage: 1 DF, 2X/DAY
     Route: 048
     Dates: start: 20150511, end: 20150520
  6. LYRICA [Concomitant]
     Active Substance: PREGABALIN
     Dosage: UNK
  7. ESIDREX [Suspect]
     Active Substance: HYDROCHLOROTHIAZIDE
     Dosage: 25 MG, DAILY
     Route: 048
     Dates: end: 20150601
  8. CORDARONE [Concomitant]
     Active Substance: AMIODARONE HYDROCHLORIDE
     Dosage: UNK
     Dates: start: 201406, end: 20150604
  9. LANSOPRAZOLE. [Concomitant]
     Active Substance: LANSOPRAZOLE
     Dosage: UNK
  10. DAFALGAN [Concomitant]
     Active Substance: ACETAMINOPHEN
     Dosage: UNK
  11. RAMIPRIL. [Suspect]
     Active Substance: RAMIPRIL
     Dosage: 5 MG, DAILY
     Route: 048
     Dates: end: 20150601
  12. TEMESTA [Concomitant]
     Active Substance: LORAZEPAM
     Dosage: UNK

REACTIONS (7)
  - Acute kidney injury [Recovered/Resolved]
  - Abnormal behaviour [Unknown]
  - Incoherent [Unknown]
  - Bacterial test positive [Recovering/Resolving]
  - Microcytic anaemia [Unknown]
  - Pyramidal tract syndrome [Unknown]
  - Disorientation [Recovered/Resolved]

NARRATIVE: CASE EVENT DATE: 2015
